FAERS Safety Report 9316613 (Version 1)
Quarter: 2013Q2

REPORT INFORMATION
  Report Type: Spontaneous
  Country: US (occurrence: US)
  Receive Date: 20130530
  Receipt Date: 20130530
  Transmission Date: 20140414
  Serious: Yes (Other)
  Sender: FDA-Public Use
  Company Number: US-MYLANLABS-2013S1011312

PATIENT
  Age: 44 Year
  Sex: Female
  Weight: 90.27 kg

DRUGS (2)
  1. LEVOTHYROXINE SODIUM TABLETS, USP [Suspect]
     Indication: HYPOTHYROIDISM
     Dates: start: 201201, end: 201210
  2. SYNTHROID [Suspect]
     Indication: HYPOTHYROIDISM
     Dates: start: 201210

REACTIONS (9)
  - Blood phosphorus decreased [Unknown]
  - Headache [Unknown]
  - Fatigue [Unknown]
  - Decreased appetite [Unknown]
  - Nausea [Unknown]
  - Hot flush [Unknown]
  - Menstruation delayed [Unknown]
  - Menstrual disorder [Unknown]
  - Polymenorrhoea [Unknown]
